FAERS Safety Report 23851986 (Version 4)
Quarter: 2024Q3

REPORT INFORMATION
  Report Type: Other
  Country: US (occurrence: US)
  Receive Date: 20240514
  Receipt Date: 20240730
  Transmission Date: 20241016
  Serious: Yes (Congenital Anomaly, Other)
  Sender: MACLEODS
  Company Number: US-MACLEODS PHARMA-MAC2024047201

PATIENT

DRUGS (5)
  1. TENOFOVIR [Suspect]
     Active Substance: TENOFOVIR
     Indication: Product used for unknown indication
     Dosage: 1 COURSE PRIOR TO CONCEPTION, FIRST EXPOSURE OF TRIMESTER
     Route: 064
     Dates: start: 20220901
  2. RITONAVIR [Suspect]
     Active Substance: RITONAVIR
     Indication: Product used for unknown indication
     Dosage: 1 COURSE PRIOR TO CONCEPTION, FIRST EXPOSURE OF TRIMESTER
     Route: 064
     Dates: start: 20170314
  3. DARUNAVIR [Suspect]
     Active Substance: DARUNAVIR
     Indication: Product used for unknown indication
     Dosage: 1 COURSE PRIOR TO CONCEPTION FIRST EXPOSURE OF TRIMESTER
     Route: 064
     Dates: start: 20210716
  4. TIVICAY [Suspect]
     Active Substance: DOLUTEGRAVIR SODIUM
     Indication: Product used for unknown indication
     Dosage: 1 COURSE PRIOR TO CONCEPTION FIRST EXPOSURE OF TRIMESTER
     Route: 064
     Dates: start: 20220901
  5. FOLIC ACID [Suspect]
     Active Substance: FOLIC ACID
     Indication: Product used for unknown indication
     Dosage: DURING ALL THREE TRIMESTER
     Route: 064

REACTIONS (2)
  - Scrotal cyst [Unknown]
  - Foetal exposure during pregnancy [Unknown]

NARRATIVE: CASE EVENT DATE: 20240314
